FAERS Safety Report 7746572-0 (Version None)
Quarter: 2011Q3

REPORT INFORMATION
  Report Type: 
  Country: None (occurrence: None)
  Receive Date: 20110913
  Receipt Date: 20100810
  Transmission Date: 20111222
  Serious: No
  Sender: FDA-Public Use
  Company Number: US-BAYER-201033002NA

PATIENT
  Age: 17 Year
  Sex: Female

DRUGS (1)
  1. MIRENA [Suspect]
     Dosage: UNK
     Dates: start: 20100401

REACTIONS (3)
  - ABDOMINAL PAIN [None]
  - VAGINAL DISCHARGE [None]
  - ABDOMINAL DISTENSION [None]
